FAERS Safety Report 7001184-1 (Version None)
Quarter: 2010Q3

REPORT INFORMATION
  Report Type: 
  Country: None (occurrence: None)
  Receive Date: 20100920
  Receipt Date: 20071120
  Transmission Date: 20110219
  Serious: No
  Sender: FDA-Public Use
  Company Number: US-ASTRAZENECA-2007UW19298

PATIENT
  Age: 14169 Day
  Sex: Female
  Weight: 94.3 kg

DRUGS (8)
  1. SEROQUEL [Suspect]
     Indication: BIPOLAR DISORDER
     Dosage: 25MG-100MG
     Route: 048
     Dates: start: 20020426
  2. SEROQUEL [Suspect]
     Dosage: 25-200MG
     Route: 048
     Dates: start: 20030101, end: 20070201
  3. CYMBALTA [Concomitant]
     Dosage: 30MG -60MG
     Dates: start: 20060307
  4. LITHIUM [Concomitant]
     Dates: start: 20030315
  5. PREVALITE [Concomitant]
     Dates: start: 20031029
  6. FOCALIN [Concomitant]
     Dates: start: 20051115
  7. WELLBUTRIN [Concomitant]
     Dates: start: 20020426
  8. ZOLOFT [Concomitant]
     Dosage: 50MG-100MG
     Dates: start: 20020311

REACTIONS (2)
  - INSULIN RESISTANCE [None]
  - TYPE 2 DIABETES MELLITUS [None]
